FAERS Safety Report 20140995 (Version 1)
Quarter: 2021Q4

REPORT INFORMATION
  Report Type: Spontaneous
  Country: GR (occurrence: GR)
  Receive Date: 20211202
  Receipt Date: 20211202
  Transmission Date: 20220303
  Serious: Yes (Other)
  Sender: FDA-Public Use
  Company Number: GR-PFIZER INC-202101617740

PATIENT
  Age: 63 Year
  Sex: Male

DRUGS (2)
  1. FLUCONAZOLE [Suspect]
     Active Substance: FLUCONAZOLE
     Indication: Superinfection
     Dosage: UNK
  2. TIGECYCLINE [Suspect]
     Active Substance: TIGECYCLINE
     Indication: Superinfection
     Dosage: UNK

REACTIONS (1)
  - Drug-induced liver injury [Unknown]
